FAERS Safety Report 8502228-8 (Version None)
Quarter: 2012Q3

REPORT INFORMATION
  Report Type: 
  Country: None (occurrence: None)
  Receive Date: 20120711
  Receipt Date: 20120627
  Transmission Date: 20120928
  Serious: Yes (Other)
  Sender: FDA-Public Use
  Company Number: IE-RANBAXY-2012RR-57070

PATIENT
  Sex: Female

DRUGS (2)
  1. NOVARAPID [Suspect]
     Indication: TYPE 1 DIABETES MELLITUS
     Dosage: UNK
     Route: 042
  2. CEFACLOR [Suspect]
     Indication: URINARY TRACT INFECTION
     Dosage: 5 ML, SINGLE
     Route: 048
     Dates: start: 20120529, end: 20120529

REACTIONS (6)
  - SWELLING FACE [None]
  - RASH GENERALISED [None]
  - HYPERHIDROSIS [None]
  - PARAESTHESIA [None]
  - VOMITING [None]
  - COUGH [None]
